FAERS Safety Report 10249471 (Version 1)
Quarter: 2014Q2

REPORT INFORMATION
  Report Type: Spontaneous
  Country: US (occurrence: None)
  Receive Date: 20140619
  Receipt Date: 20140619
  Transmission Date: 20141212
  Serious: Yes (Hospitalization)
  Sender: FDA-Public Use
  Company Number: None

PATIENT
  Age: 72 Year
  Sex: Female
  Weight: 59 kg

DRUGS (5)
  1. CYCLOPHOSPHAMIDE [Suspect]
     Dates: end: 20140529
  2. DOXORUBICIN HYDROCHLORIDE [Suspect]
     Dates: end: 20140529
  3. PREDNISONE [Suspect]
     Dates: end: 20140602
  4. RITUXIMAB (MOAB C2B8 ANTI CD20, CHIMERIC) [Suspect]
     Dates: end: 20140529
  5. VINCRISTINE SULFATE [Suspect]
     Dates: end: 20140529

REACTIONS (9)
  - Cough [None]
  - Anaemia [None]
  - Atrial fibrillation [None]
  - Necrosis [None]
  - Ejection fraction decreased [None]
  - Pneumonia [None]
  - Hypomagnesaemia [None]
  - Troponin increased [None]
  - Pyrexia [None]
